FAERS Safety Report 5843660-0 (Version None)
Quarter: 2008Q3

REPORT INFORMATION
  Report Type: 
  Country: None (occurrence: None)
  Receive Date: 20080813
  Receipt Date: 20080731
  Transmission Date: 20090109
  Serious: Yes (Other)
  Sender: FDA-Public Use
  Company Number: IT-ELI_LILLY_AND_COMPANY-IT200808000010

PATIENT
  Sex: Male
  Weight: 81 kg

DRUGS (5)
  1. PEMETREXED [Suspect]
     Indication: NON-SMALL CELL LUNG CANCER
     Dosage: 500 MG/M2, ON D1 EVERY 21 DAYS
     Route: 042
     Dates: start: 20080702, end: 20080723
  2. DEXAMETHASONE [Concomitant]
     Indication: PROPHYLAXIS
     Dosage: 4 MG, 2/D
     Route: 048
     Dates: start: 20080702
  3. FOLIC ACID [Concomitant]
     Indication: PROPHYLAXIS
     Dosage: 270 MG, DAILY (1/D)
     Route: 048
     Dates: start: 20080701
  4. VITAMIN B-12 [Concomitant]
     Indication: PROPHYLAXIS
     Dosage: UNK, UNKNOWN
     Dates: start: 20080630
  5. VALACYCLOVIR HCL [Concomitant]
     Indication: KERATITIS HERPETIC
     Dosage: 500 MG, UNKNOWN
     Dates: end: 20080709

REACTIONS (1)
  - ERYTHEMA MULTIFORME [None]
